FAERS Safety Report 5051545-5 (Version None)
Quarter: 2006Q3

REPORT INFORMATION
  Report Type: 
  Country: None (occurrence: None)
  Receive Date: 20060714
  Receipt Date: 20060703
  Transmission Date: 20061208
  Serious: Yes (Other)
  Sender: FDA-Public Use
  Company Number: PHBS2006SE09891

PATIENT
  Age: 64 Year
  Sex: Male

DRUGS (3)
  1. ZOMETA [Suspect]
     Indication: HYPERCALCAEMIA
     Dosage: 4 MG, QMO
     Route: 065
     Dates: end: 20060601
  2. BETAPRED [Concomitant]
     Route: 065
  3. DOLCONTIN [Concomitant]
     Route: 065

REACTIONS (1)
  - OSTEONECROSIS [None]
